FAERS Safety Report 9775343 (Version 1)
Quarter: 2013Q4

REPORT INFORMATION
  Report Type: Spontaneous
  Country: US (occurrence: US)
  Receive Date: 20131220
  Receipt Date: 20131220
  Transmission Date: 20140711
  Serious: Yes (Hospitalization, Other)
  Sender: FDA-Public Use
  Company Number: US-GILEAD-2013-0090268

PATIENT
  Sex: Female

DRUGS (2)
  1. LETAIRIS [Suspect]
     Indication: PRODUCT USED FOR UNKNOWN INDICATION
     Dosage: 10 MG, QD
     Route: 048
     Dates: start: 20100115
  2. ADCIRCA [Concomitant]

REACTIONS (6)
  - Thrombosis [Unknown]
  - Chest discomfort [Unknown]
  - Skin discolouration [Unknown]
  - Oedema peripheral [Unknown]
  - Dyspnoea [Unknown]
  - Muscle spasms [Unknown]
